FAERS Safety Report 24990756 (Version 2)
Quarter: 2025Q1

REPORT INFORMATION
  Report Type: Other
  Country: CA (occurrence: CA)
  Receive Date: 20250220
  Receipt Date: 20250319
  Transmission Date: 20250408
  Serious: Yes (Hospitalization, Other)
  Sender: TOLMAR
  Company Number: CA-20250204-e8bf83

PATIENT
  Sex: Male

DRUGS (3)
  1. ELIGARD [Suspect]
     Active Substance: LEUPROLIDE ACETATE
     Indication: Prostate cancer
     Dosage: 45 MG, Q 6 MONTHS
     Route: 058
     Dates: start: 20191212
  2. ELIGARD [Suspect]
     Active Substance: LEUPROLIDE ACETATE
     Dosage: 45 MG, Q 6 MONTHS
     Route: 058
     Dates: start: 20240824
  3. ELIGARD [Suspect]
     Active Substance: LEUPROLIDE ACETATE
     Indication: Prostate cancer

REACTIONS (5)
  - Blindness [Not Recovered/Not Resolved]
  - Oxygen saturation decreased [Unknown]
  - Prostate cancer [Not Recovered/Not Resolved]
  - Mobility decreased [Unknown]
  - Pyrexia [Unknown]
